FAERS Safety Report 10523927 (Version 1)
Quarter: 2014Q4

REPORT INFORMATION
  Report Type: Report from Study
  Country: US (occurrence: US)
  Receive Date: 20141017
  Receipt Date: 20141017
  Transmission Date: 20150528
  Serious: No
  Sender: FDA-Public Use
  Company Number: US-AMGEN INC.-USASL2014078551

PATIENT
  Age: 43 Year
  Sex: Female

DRUGS (2)
  1. ENBREL [Suspect]
     Active Substance: ETANERCEPT
     Indication: ANKYLOSING SPONDYLITIS
     Dosage: 50 MG, QWK
     Route: 065
     Dates: start: 20140717, end: 20140904
  2. ENBREL [Suspect]
     Active Substance: ETANERCEPT
     Indication: PSORIATIC ARTHROPATHY

REACTIONS (2)
  - Oral herpes [Not Recovered/Not Resolved]
  - Dyshidrotic eczema [Not Recovered/Not Resolved]

NARRATIVE: CASE EVENT DATE: 201409
